FAERS Safety Report 20579397 (Version 2)
Quarter: 2022Q2

REPORT INFORMATION
  Report Type: Spontaneous
  Country: AR (occurrence: AR)
  Receive Date: 20220310
  Receipt Date: 20220425
  Transmission Date: 20220721
  Serious: No
  Sender: FDA-Public Use
  Company Number: AR-PFIZER INC-202200254850

PATIENT
  Age: 45 Year
  Sex: Female

DRUGS (6)
  1. GENOTROPIN [Suspect]
     Active Substance: SOMATROPIN
     Indication: Growth hormone deficiency
     Dosage: 0.1 A 0.5 MG/ 7 TIMES A WEEK
     Dates: start: 20121114
  2. GENOTROPIN [Suspect]
     Active Substance: SOMATROPIN
     Dosage: 0.5 MG/ 3 TIMES A WEEK
     Dates: end: 202202
  3. LEVOTHYROXINE SODIUM [Concomitant]
     Active Substance: LEVOTHYROXINE SODIUM
     Dosage: UNK
     Dates: start: 198503
  4. HIDROTISONA [Concomitant]
     Dosage: UNK
     Dates: start: 198503
  5. DESMOPRESSIN [Concomitant]
     Active Substance: DESMOPRESSIN
     Dosage: UNK
     Dates: start: 198503
  6. MAXIMA MD [Concomitant]
     Indication: Hormone replacement therapy
     Dosage: UNK

REACTIONS (2)
  - Intentional product misuse [Unknown]
  - Device difficult to use [Unknown]

NARRATIVE: CASE EVENT DATE: 20220101
